FAERS Safety Report 15025250 (Version 4)
Quarter: 2018Q3

REPORT INFORMATION
  Report Type: Report from Study
  Country: US (occurrence: US)
  Receive Date: 20180618
  Receipt Date: 20180910
  Transmission Date: 20181010
  Serious: Yes (Hospitalization)
  Sender: FDA-Public Use
  Company Number: US-ACTELION-A-NJ2018-173676

PATIENT
  Age: 10 Month
  Sex: Female

DRUGS (1)
  1. TRACLEER [Suspect]
     Active Substance: BOSENTAN
     Indication: PULMONARY HYPERTENSION
     Dosage: 62.5 MG, BID
     Route: 048

REACTIONS (8)
  - Tracheal stenosis [Unknown]
  - Aortic valve repair [Unknown]
  - Atrioventricular septal defect [Unknown]
  - Cardiac septal defect repair [Unknown]
  - Cardiac operation [Unknown]
  - Aortic valve incompetence [Unknown]
  - Post procedural complication [Unknown]
  - Mitral valve repair [Unknown]

NARRATIVE: CASE EVENT DATE: 2018
